FAERS Safety Report 25189440 (Version 1)
Quarter: 2025Q2

REPORT INFORMATION
  Report Type: Spontaneous
  Country: GB (occurrence: GB)
  Receive Date: 20250411
  Receipt Date: 20250411
  Transmission Date: 20250716
  Serious: Yes (Life-Threatening, Hospitalization)
  Sender: MYLAN
  Company Number: GB-MYLANLABS-2025M1031555

PATIENT
  Sex: Male

DRUGS (8)
  1. AMIODARONE [Suspect]
     Active Substance: AMIODARONE
     Indication: Ventricular arrhythmia
  2. AMIODARONE [Suspect]
     Active Substance: AMIODARONE
     Route: 042
  3. AMIODARONE [Suspect]
     Active Substance: AMIODARONE
     Route: 042
  4. AMIODARONE [Suspect]
     Active Substance: AMIODARONE
  5. LIDOCAINE [Suspect]
     Active Substance: LIDOCAINE
     Indication: Ventricular arrhythmia
  6. LIDOCAINE [Suspect]
     Active Substance: LIDOCAINE
     Route: 065
  7. LIDOCAINE [Suspect]
     Active Substance: LIDOCAINE
     Route: 065
  8. LIDOCAINE [Suspect]
     Active Substance: LIDOCAINE

REACTIONS (1)
  - Drug ineffective [Unknown]
